FAERS Safety Report 5059880-1 (Version None)
Quarter: 2006Q3

REPORT INFORMATION
  Report Type: 
  Country: None (occurrence: None)
  Receive Date: 20060724
  Receipt Date: 20060717
  Transmission Date: 20061208
  Serious: Yes (Life-Threatening, Hospitalization)
  Sender: FDA-Public Use
  Company Number: JP-SANOFI-SYNTHELABO-F01200601665

PATIENT
  Sex: Male
  Weight: 67 kg

DRUGS (13)
  1. FLUOROURACIL [Suspect]
     Indication: COLON CANCER
     Dosage: 722MG/BODY=417.3MG/M2 IN BOLUS THEN 1083MG/BODY=626MG/M2 AS CONTINUOUS INFUSION
     Route: 042
     Dates: start: 20060620, end: 20060620
  2. FLUOROURACIL [Suspect]
     Dosage: 722MG/BODY=417.3MG/M2 IN BOLUS THEN 1083MG/BODY=626MG/M2 AS CONTINUOUS INFUSION
     Route: 042
     Dates: start: 20060620, end: 20060621
  3. LOXOPROFEN [Concomitant]
     Indication: PAIN
     Dates: start: 20060704
  4. MAGNESIUM OXIDE [Concomitant]
     Indication: CONSTIPATION
     Dosage: 0.9-1.2 G
     Route: 048
     Dates: start: 20060620
  5. MINOCYCLINE HYDROCHLORIDE [Concomitant]
     Route: 048
     Dates: start: 20060608, end: 20060704
  6. DIMETICONE [Concomitant]
     Indication: FLATULENCE
     Route: 048
     Dates: start: 20060606
  7. POVIDONE IODINE [Concomitant]
     Indication: STOMATITIS
     Dates: start: 20060510, end: 20060620
  8. CLONAZEPAM [Concomitant]
     Indication: HICCUPS
     Route: 048
     Dates: start: 20060525, end: 20060526
  9. BUTYRIC ACID BACTERIUM AGENT [Concomitant]
     Indication: CONSTIPATION
     Route: 048
  10. DAI-KENCHU-TO [Concomitant]
     Indication: ILEUS
     Dosage: 7.5 G - 15.0 G
     Route: 048
  11. CALCIUM LEVOFOLINATE [Suspect]
     Indication: COLON CANCER
     Dosage: 181MG/BODY=104.6MG/M2 AS INFUSION ON DAYS 1 AND 2
     Route: 042
     Dates: start: 20060620, end: 20060621
  12. OXALIPLATIN [Suspect]
     Indication: COLON CANCER
     Dosage: 153MG/BODY=88.4MG/M2 IN INFUSION ON DAY 1
     Route: 042
     Dates: start: 20060620, end: 20060620
  13. AVASTIN [Suspect]
     Indication: COLON CANCER
     Route: 042
     Dates: start: 20060620, end: 20060620

REACTIONS (2)
  - ARTIFICIAL ANUS [None]
  - GASTROINTESTINAL PERFORATION [None]
